FAERS Safety Report 13737452 (Version 3)
Quarter: 2017Q3

REPORT INFORMATION
  Report Type: Report from Study
  Country: JP (occurrence: JP)
  Receive Date: 20170710
  Receipt Date: 20170717
  Transmission Date: 20171127
  Serious: Yes (Life-Threatening, Hospitalization)
  Sender: FDA-Public Use
  Company Number: JP-JNJFOC-20170628687

PATIENT
  Age: 63 Year
  Sex: Female
  Weight: 62 kg

DRUGS (22)
  1. LYRICA [Concomitant]
     Active Substance: PREGABALIN
     Indication: NEUROPATHY PERIPHERAL
     Route: 048
     Dates: start: 20160217, end: 20170703
  2. LAC-B [Concomitant]
     Active Substance: BIFIDOBACTERIUM SPP.
     Indication: ABDOMINAL DISCOMFORT
     Route: 048
     Dates: start: 20170426, end: 20170625
  3. OCTREOTIDE. [Concomitant]
     Active Substance: OCTREOTIDE
     Indication: ABDOMINAL DISCOMFORT
     Dosage: 16 MCG/ PER HOUR
     Route: 041
     Dates: start: 20170630, end: 20170707
  4. FUROSEMIDE. [Concomitant]
     Active Substance: FUROSEMIDE
     Indication: MALIGNANT ASCITES
     Route: 048
     Dates: start: 20170630, end: 20170703
  5. AKINETON [Concomitant]
     Active Substance: BIPERIDEN HYDROCHLORIDE
     Indication: AKATHISIA
     Route: 048
     Dates: start: 20170627, end: 20170703
  6. DECADRON [Concomitant]
     Active Substance: DEXAMETHASONE
     Indication: NAUSEA
     Route: 048
     Dates: start: 20170627, end: 20170703
  7. ZYPREXA [Concomitant]
     Active Substance: OLANZAPINE
     Indication: NAUSEA
     Route: 048
     Dates: start: 20170626, end: 20170703
  8. KENALOG [Concomitant]
     Active Substance: TRIAMCINOLONE ACETONIDE
     Indication: STOMATITIS
     Route: 061
     Dates: start: 20170625
  9. PRIMPERAN [Concomitant]
     Active Substance: METOCLOPRAMIDE HYDROCHLORIDE
     Indication: NAUSEA
     Route: 041
     Dates: start: 20170626
  10. BETAMETHASONE. [Concomitant]
     Active Substance: BETAMETHASONE
     Route: 048
     Dates: start: 20170625, end: 20170626
  11. GLYCERIN. [Concomitant]
     Active Substance: GLYCERIN
     Route: 049
     Dates: start: 20170621
  12. DOXIL [Suspect]
     Active Substance: DOXORUBICIN HYDROCHLORIDE
     Indication: OVARIAN CANCER
     Route: 041
     Dates: start: 20170614, end: 20170614
  13. TRAMAL [Concomitant]
     Active Substance: TRAMADOL
     Indication: NEUROPATHY PERIPHERAL
     Route: 048
     Dates: start: 2015
  14. FAMOTIDINE. [Concomitant]
     Active Substance: FAMOTIDINE
     Indication: ABDOMINAL DISCOMFORT
     Route: 048
     Dates: start: 2015, end: 20170703
  15. XYLOCAINE [Concomitant]
     Active Substance: LIDOCAINE HYDROCHLORIDE
     Indication: STOMATITIS
     Route: 049
     Dates: start: 20170621
  16. TRAMADOL HYDROCHLORIDE. [Concomitant]
     Active Substance: TRAMADOL HYDROCHLORIDE
     Indication: NEUROPATHY PERIPHERAL
     Route: 048
     Dates: start: 20160515
  17. FUROSEMIDE. [Concomitant]
     Active Substance: FUROSEMIDE
     Indication: MALIGNANT ASCITES
     Route: 048
     Dates: start: 20161014
  18. FENTANYL CITRATE. [Concomitant]
     Active Substance: FENTANYL CITRATE
     Indication: PAIN
     Route: 002
     Dates: start: 20170627
  19. FENTANYL CITRATE. [Concomitant]
     Active Substance: FENTANYL CITRATE
     Indication: PAIN
     Route: 062
     Dates: start: 20170627
  20. ALDACTONE A [Concomitant]
     Active Substance: SPIRONOLACTONE
     Indication: MALIGNANT ASCITES
     Route: 048
     Dates: start: 20161014, end: 20170703
  21. NOVAMIN (PROCHLORPERAZINE) [Concomitant]
     Active Substance: PROCHLORPERAZINE
     Indication: NAUSEA
     Route: 048
     Dates: start: 20170626, end: 20170703
  22. SODIUM CHLORIDE. [Concomitant]
     Active Substance: SODIUM CHLORIDE
     Indication: ELECTROLYTE SUBSTITUTION THERAPY
     Route: 042
     Dates: start: 20170629

REACTIONS (4)
  - Nausea [Recovered/Resolved]
  - Feeling abnormal [Unknown]
  - Hypophagia [Unknown]
  - Sepsis [Recovered/Resolved]

NARRATIVE: CASE EVENT DATE: 20170615
